FAERS Safety Report 15005233 (Version 1)
Quarter: 2018Q2

REPORT INFORMATION
  Report Type: Spontaneous
  Country: US (occurrence: US)
  Receive Date: 20180613
  Receipt Date: 20180613
  Transmission Date: 20180711
  Serious: Yes (Other)
  Sender: FDA-Public Use
  Company Number: US-PFIZER INC-2018230902

PATIENT
  Age: 26 Year
  Sex: Male

DRUGS (1)
  1. ACETYLCYSTEINE. [Suspect]
     Active Substance: ACETYLCYSTEINE
     Indication: INTENTIONAL OVERDOSE
     Dosage: UNK
     Route: 042

REACTIONS (3)
  - Extravasation [Recovering/Resolving]
  - Compartment syndrome [Recovering/Resolving]
  - Product use in unapproved indication [Unknown]
